FAERS Safety Report 7200498-X (Version None)
Quarter: 2010Q4

REPORT INFORMATION
  Report Type: 
  Country: None (occurrence: None)
  Receive Date: 20101228
  Receipt Date: 20101221
  Transmission Date: 20110411
  Serious: Yes (Other)
  Sender: FDA-Public Use
  Company Number: IT-PFIZER INC-2010177048

PATIENT
  Age: 10 Year
  Sex: Male

DRUGS (2)
  1. ADRIBLASTINA [Suspect]
     Indication: NON-HODGKIN'S LYMPHOMA
     Dosage: 45 MG, CYCLIC
     Route: 042
     Dates: start: 20101008, end: 20101008
  2. VINCRISTINE [Suspect]
     Indication: NON-HODGKIN'S LYMPHOMA
     Dosage: 2 MG, CYCLIC
     Route: 042
     Dates: start: 20101008, end: 20101008

REACTIONS (2)
  - ASTHENIA [None]
  - GAIT DISTURBANCE [None]
